FAERS Safety Report 7670046-9 (Version None)
Quarter: 2011Q3

REPORT INFORMATION
  Report Type: 
  Country: None (occurrence: None)
  Receive Date: 20110808
  Receipt Date: 20110808
  Transmission Date: 20111222
  Serious: Yes (Hospitalization, Other)
  Sender: FDA-Public Use
  Company Number: US-ABBOTT-11P-163-0703105-00

PATIENT
  Sex: Female
  Weight: 70.37 kg

DRUGS (15)
  1. CELEBREX [Concomitant]
     Indication: RHEUMATOID ARTHRITIS
  2. LIPITOR [Concomitant]
     Indication: BLOOD CHOLESTEROL INCREASED
  3. HUMIRA [Suspect]
  4. METOPROLOL TARTRATE [Concomitant]
     Indication: PRODUCT USED FOR UNKNOWN INDICATION
  5. TYLENOL-500 [Concomitant]
     Indication: ARTHRALGIA
  6. PRILOSEC [Concomitant]
     Indication: GASTROOESOPHAGEAL REFLUX DISEASE
  7. GLIPIZIDE [Concomitant]
     Indication: DIABETES MELLITUS
  8. PREDNISONE [Concomitant]
     Indication: RHEUMATOID ARTHRITIS
  9. TRAMADOL HCL [Concomitant]
     Indication: ARTHRALGIA
  10. HUMIRA [Suspect]
     Indication: RHEUMATOID ARTHRITIS
     Dates: start: 20040101, end: 20080801
  11. METHOTREXATE [Concomitant]
     Indication: RHEUMATOID ARTHRITIS
  12. ASPIRIN [Concomitant]
     Indication: PRODUCT USED FOR UNKNOWN INDICATION
  13. VICODIN [Concomitant]
     Indication: ARTHRALGIA
  14. MOTRIN [Concomitant]
     Indication: PAIN
  15. VITAMIN TAB [Concomitant]
     Indication: VITAMIN SUPPLEMENTATION

REACTIONS (24)
  - CHEST X-RAY ABNORMAL [None]
  - MUCOSAL DISCOLOURATION [None]
  - ARTHRALGIA [None]
  - FALL [None]
  - COELIAC ARTERY STENOSIS [None]
  - VOMITING [None]
  - RIB FRACTURE [None]
  - THROAT IRRITATION [None]
  - GASTRIC DISORDER [None]
  - LUNG NEOPLASM MALIGNANT [None]
  - UROSEPSIS [None]
  - MESENTERIC VASCULAR INSUFFICIENCY [None]
  - SEPSIS [None]
  - CYSTITIS [None]
  - URETERIC OBSTRUCTION [None]
  - FOOT OPERATION [None]
  - ABDOMINAL PAIN UPPER [None]
  - PAINFUL RESPIRATION [None]
  - MESENTERIC OCCLUSION [None]
  - NASOPHARYNGITIS [None]
  - COUGH [None]
  - DYSPHONIA [None]
  - BLOOD GLUCOSE INCREASED [None]
  - INFECTION [None]
